FAERS Safety Report 19435484 (Version 4)
Quarter: 2022Q2

REPORT INFORMATION
  Report Type: Spontaneous
  Country: AU (occurrence: AU)
  Receive Date: 20210618
  Receipt Date: 20220628
  Transmission Date: 20220721
  Serious: Yes (Hospitalization, Other)
  Sender: FDA-Public Use
  Company Number: AU-GSKCCFAPAC-CASE-01234290_AE-45705

PATIENT

DRUGS (1)
  1. VENTOLIN [Suspect]
     Active Substance: ALBUTEROL SULFATE
     Indication: Product used for unknown indication
     Dosage: UNK 100MCG 1X200D
     Route: 055

REACTIONS (3)
  - Pneumonia [Recovered/Resolved]
  - Product dose omission issue [Unknown]
  - Product complaint [Unknown]
